FAERS Safety Report 13247602 (Version 1)
Quarter: 2017Q1

REPORT INFORMATION
  Report Type: Report from Study
  Country: None (occurrence: ES)
  Receive Date: 20170217
  Receipt Date: 20170217
  Transmission Date: 20170428
  Serious: Yes (Death)
  Sender: FDA-Public Use
  Company Number: ES-ABBVIE-17P-144-1872382-00

PATIENT
  Age: 83 Year
  Sex: Female

DRUGS (6)
  1. KREON [Concomitant]
     Active Substance: PANCRELIPASE
     Indication: VIPOMA
     Route: 048
  2. BOI-K (POTASIO BICARBONATO, ASCORBICO ACIDO) (NON-ABBVIE) [Concomitant]
     Indication: DEHYDRATION
  3. BOI-K (POTASIO BICARBONATO, ASCORBICO ACIDO) (NON-ABBVIE) [Concomitant]
     Indication: HYPOKALAEMIA
  4. LEPONEX [Concomitant]
     Active Substance: CLOZAPINE
     Indication: HALLUCINATION
     Dates: start: 20161111
  5. SANDOSTATIN [Concomitant]
     Active Substance: OCTREOTIDE ACETATE
     Indication: PRODUCT USED FOR UNKNOWN INDICATION
     Dosage: 0.3
     Route: 058
  6. DUODOPA [Suspect]
     Active Substance: CARBIDOPA\LEVODOPA
     Indication: PARKINSON^S DISEASE
     Route: 050
     Dates: start: 20161107

REACTIONS (4)
  - Vipoma [Fatal]
  - General physical health deterioration [Fatal]
  - Mobility decreased [Unknown]
  - Aphasia [Unknown]

NARRATIVE: CASE EVENT DATE: 201701
